FAERS Safety Report 9760374 (Version 2)
Quarter: 2015Q3

REPORT INFORMATION
  Report Type: Spontaneous
  Country: US (occurrence: US)
  Receive Date: 20131216
  Receipt Date: 20150806
  Transmission Date: 20151125
  Serious: No
  Sender: FDA-Public Use
  Company Number: US-GILEAD-2010-0029617

PATIENT
  Age: 71 Year
  Sex: Female

DRUGS (12)
  1. STRATTERA [Concomitant]
     Active Substance: ATOMOXETINE HYDROCHLORIDE
  2. FISH OIL [Concomitant]
     Active Substance: FISH OIL
  3. PERCOCET [Concomitant]
     Active Substance: ACETAMINOPHEN\OXYCODONE HYDROCHLORIDE
  4. TYLENOL PM [Concomitant]
     Active Substance: ACETAMINOPHEN\DIPHENHYDRAMINE
  5. DULCOLAX MOM [Concomitant]
  6. METHYLPRED [Concomitant]
     Active Substance: METHYLPREDNISOLONE
  7. ATENOLOL. [Concomitant]
     Active Substance: ATENOLOL
  8. MULTIVITAMIN [Concomitant]
     Active Substance: VITAMINS
  9. LETAIRIS [Suspect]
     Active Substance: AMBRISENTAN
     Indication: PULMONARY ARTERIAL HYPERTENSION
     Route: 048
     Dates: start: 20100215
  10. PRED FORTE SUS [Concomitant]
  11. ACUVAIL [Concomitant]
     Active Substance: KETOROLAC TROMETHAMINE
  12. ADVIL PM [Concomitant]
     Active Substance: DIPHENHYDRAMINE CITRATE\IBUPROFEN

REACTIONS (1)
  - Constipation [Not Recovered/Not Resolved]

NARRATIVE: CASE EVENT DATE: 20100508
